FAERS Safety Report 12062875 (Version 1)
Quarter: 2016Q1

REPORT INFORMATION
  Report Type: Report from Study
  Country: US (occurrence: US)
  Receive Date: 20160210
  Receipt Date: 20160210
  Transmission Date: 20160526
  Serious: No
  Sender: FDA-Public Use
  Company Number: US-BIOGEN-2013BI110801

PATIENT
  Age: 59 Year
  Sex: Female

DRUGS (2)
  1. AVONEX [Suspect]
     Active Substance: INTERFERON BETA-1A
     Route: 065
     Dates: start: 19901112
  2. AVONEX [Suspect]
     Active Substance: INTERFERON BETA-1A
     Indication: MULTIPLE SCLEROSIS
     Route: 030
     Dates: start: 19961112

REACTIONS (13)
  - Vision blurred [Unknown]
  - Eye ulcer [Unknown]
  - Neck pain [Unknown]
  - Pain [Unknown]
  - Nasopharyngitis [Not Recovered/Not Resolved]
  - Musculoskeletal pain [Unknown]
  - Mobility decreased [Recovered/Resolved]
  - Asthenia [Not Recovered/Not Resolved]
  - Decubitus ulcer [Not Recovered/Not Resolved]
  - Hypopnoea [Unknown]
  - Quadriplegia [Unknown]
  - Depression [Unknown]
  - Gait disturbance [Unknown]

NARRATIVE: CASE EVENT DATE: 201508
